FAERS Safety Report 6940880-9 (Version None)
Quarter: 2010Q3

REPORT INFORMATION
  Report Type: 
  Country: None (occurrence: None)
  Receive Date: 20100825
  Receipt Date: 20100817
  Transmission Date: 20110219
  Serious: Yes (Death, Hospitalization, Other)
  Sender: FDA-Public Use
  Company Number: US-AMGEN-QUU406327

PATIENT
  Sex: Female
  Weight: 54 kg

DRUGS (21)
  1. NPLATE [Suspect]
     Indication: IDIOPATHIC THROMBOCYTOPENIC PURPURA
     Route: 058
     Dates: start: 20090916, end: 20091118
  2. CORTICOSTEROIDS [Concomitant]
  3. IMMU-G [Concomitant]
  4. LYRICA [Concomitant]
  5. PREDNISONE [Concomitant]
  6. ULTRAM [Concomitant]
  7. PRILOSEC [Concomitant]
  8. COREG [Concomitant]
  9. ALISKIREN [Concomitant]
  10. PRAVACHOL [Concomitant]
  11. XANAX [Concomitant]
  12. PROCARDIA XL [Concomitant]
  13. LACTOBACILLUS ACIDOPHILUS [Concomitant]
  14. FLAGYL [Concomitant]
  15. AVAPRO [Concomitant]
  16. POTASSIUM [Concomitant]
  17. CALCIUM [Concomitant]
  18. VALTREX [Concomitant]
  19. MAXIDEX [Concomitant]
  20. GABAPENTIN [Concomitant]
  21. FLUDARA [Concomitant]

REACTIONS (18)
  - ACUTE MYOCARDIAL INFARCTION [None]
  - ACUTE RESPIRATORY FAILURE [None]
  - ASTHENIA [None]
  - CELLULITIS [None]
  - CHILLS [None]
  - CHRONIC LYMPHOCYTIC LEUKAEMIA RECURRENT [None]
  - CONFUSIONAL STATE [None]
  - HYPOTENSION [None]
  - ILEUS [None]
  - LETHARGY [None]
  - LISTLESS [None]
  - MALAISE [None]
  - PNEUMONIA [None]
  - PSEUDOMONAL SEPSIS [None]
  - PULMONARY MASS [None]
  - PYREXIA [None]
  - RENAL FAILURE ACUTE [None]
  - THROMBOCYTOPENIA [None]
